FAERS Safety Report 9640194 (Version 1)
Quarter: 2013Q4

REPORT INFORMATION
  Report Type: Spontaneous
  Country: US (occurrence: None)
  Receive Date: 20131022
  Receipt Date: 20131022
  Transmission Date: 20140711
  Serious: Yes (Death)
  Sender: FDA-Public Use
  Company Number: None

PATIENT
  Age: 21 Year
  Sex: Female

DRUGS (9)
  1. DEPO PROVERA [Suspect]
     Indication: CONTRACEPTION
     Dosage: BY INJECTION
  2. CLOZARIL [Concomitant]
  3. TOPOMAX [Concomitant]
  4. DEPAKOTE [Concomitant]
  5. DDAVP [Concomitant]
  6. LEVOTHYROID [Concomitant]
  7. DEPO PROVERA INJECTIONS [Concomitant]
  8. MULTIVITAMINS [Concomitant]
  9. COLACE [Concomitant]

REACTIONS (1)
  - Pulmonary embolism [None]
